FAERS Safety Report 9746801 (Version 1)
Quarter: 2013Q4

REPORT INFORMATION
  Report Type: Report from Study
  Country: BR (occurrence: BR)
  Receive Date: 20131211
  Receipt Date: 20131211
  Transmission Date: 20140711
  Serious: Yes (Other)
  Sender: FDA-Public Use
  Company Number: PHHY2013BR144997

PATIENT
  Sex: Female
  Weight: 58 kg

DRUGS (4)
  1. ACLASTA [Suspect]
     Indication: OSTEOPOROSIS
     Dosage: 5 MG, UNK
     Route: 042
     Dates: start: 2013
  2. LOSARTAN [Concomitant]
     Dosage: UNK UKN, UNK
  3. CALCIUM D3 [Concomitant]
     Dosage: UNK UKN, UNK
     Dates: start: 2013
  4. VITERGAN [Concomitant]
     Dosage: UNK UKN, UNK
     Dates: start: 2012

REACTIONS (4)
  - Dysentery [Recovering/Resolving]
  - Fall [Recovering/Resolving]
  - Pain [Recovering/Resolving]
  - Asthenia [Recovering/Resolving]
